FAERS Safety Report 13299678 (Version 5)
Quarter: 2019Q3

REPORT INFORMATION
  Report Type: Spontaneous
  Country: GB (occurrence: GB)
  Receive Date: 20170306
  Receipt Date: 20190920
  Transmission Date: 20191004
  Serious: Yes (Other)
  Sender: FDA-Public Use
  Company Number: GB-MYLANLABS-2017M1013234

PATIENT
  Age: 37 Year
  Sex: Male

DRUGS (2)
  1. CLOZARIL [Suspect]
     Active Substance: CLOZAPINE
     Indication: SCHIZOPHRENIA
     Dosage: UNK
     Route: 048
     Dates: start: 20100428
  2. CLOZARIL [Suspect]
     Active Substance: CLOZAPINE
     Dosage: UNK
     Route: 048
     Dates: start: 20190604

REACTIONS (6)
  - Nasopharyngitis [Unknown]
  - Leukocytosis [Not Recovered/Not Resolved]
  - Urinary tract infection [Unknown]
  - Differential white blood cell count abnormal [Not Recovered/Not Resolved]
  - Neutrophilia [Not Recovered/Not Resolved]
  - Haemoglobin increased [Unknown]

NARRATIVE: CASE EVENT DATE: 20170227
